FAERS Safety Report 4733761-2 (Version None)
Quarter: 2005Q3

REPORT INFORMATION
  Report Type: 
  Country: None (occurrence: None)
  Receive Date: 20050721
  Receipt Date: 20050512
  Transmission Date: 20060218
  Serious: No
  Sender: FDA-Public Use
  Company Number: 2005SP000742

PATIENT
  Age: 85 Year
  Sex: Male

DRUGS (2)
  1. LUNESTA [Suspect]
     Indication: INSOMNIA
     Dosage: 2 MG
     Dates: start: 20050501
  2. AMBIEN [Concomitant]

REACTIONS (1)
  - DRY MOUTH [None]
